FAERS Safety Report 17495555 (Version 1)
Quarter: 2020Q1

REPORT INFORMATION
  Report Type: Spontaneous
  Country: US (occurrence: US)
  Receive Date: 20200304
  Receipt Date: 20200304
  Transmission Date: 20200409
  Serious: No
  Sender: FDA-Public Use
  Company Number: US-PFIZER INC-2020093976

PATIENT
  Age: 64 Year
  Sex: Female

DRUGS (1)
  1. PREGABALIN. [Suspect]
     Active Substance: PREGABALIN
     Indication: NEUROPATHY PERIPHERAL
     Dosage: UNK

REACTIONS (8)
  - Pain of skin [Unknown]
  - Blister [Unknown]
  - Limb injury [Unknown]
  - Initial insomnia [Unknown]
  - Pain in extremity [Unknown]
  - Drug ineffective [Unknown]
  - Burning sensation [Unknown]
  - Pain [Unknown]
